FAERS Safety Report 18954811 (Version 3)
Quarter: 2021Q4

REPORT INFORMATION
  Report Type: Spontaneous
  Country: US (occurrence: US)
  Receive Date: 20210301
  Receipt Date: 20211005
  Transmission Date: 20220304
  Serious: Yes (Other)
  Sender: FDA-Public Use
  Company Number: US-PFIZER INC-2021154761

PATIENT
  Age: 54 Year
  Sex: Female

DRUGS (1)
  1. IBRANCE [Suspect]
     Active Substance: PALBOCICLIB
     Indication: Breast cancer female
     Dosage: UNK

REACTIONS (19)
  - Neuropathy peripheral [Unknown]
  - Asthenia [Unknown]
  - Weight increased [Recovering/Resolving]
  - Full blood count abnormal [Unknown]
  - Decreased immune responsiveness [Unknown]
  - Oral candidiasis [Unknown]
  - Rash [Unknown]
  - Pruritus [Unknown]
  - Vasodilatation [Unknown]
  - Insomnia [Unknown]
  - Dry throat [Unknown]
  - Gastrooesophageal reflux disease [Unknown]
  - Nausea [Unknown]
  - Fall [Unknown]
  - Illness [Unknown]
  - Herpes zoster [Unknown]
  - Platelet count decreased [Unknown]
  - Stress [Unknown]
  - Food allergy [Unknown]
